FAERS Safety Report 23798480 (Version 1)
Quarter: 2024Q2

REPORT INFORMATION
  Report Type: Spontaneous
  Country: IN (occurrence: IN)
  Receive Date: 20240430
  Receipt Date: 20240430
  Transmission Date: 20240716
  Serious: Yes (Death)
  Sender: FDA-Public Use
  Company Number: IN-PFIZER INC-PV202300019254

PATIENT
  Age: 74 Year
  Sex: Female

DRUGS (8)
  1. PALBOCICLIB [Suspect]
     Active Substance: PALBOCICLIB
     Indication: Hormone receptor positive breast cancer
     Dosage: 125 MG, 1X/DAY
     Route: 048
     Dates: start: 20220427
  2. PALBOCICLIB [Suspect]
     Active Substance: PALBOCICLIB
     Dosage: 100 MG, 1X/DAY
     Route: 048
  3. PALBOCICLIB [Suspect]
     Active Substance: PALBOCICLIB
     Dosage: 75 MG, 1X/DAY (DAYS 1 -21 ON, 1 WEEK OFF)
     Route: 048
  4. PALBOCICLIB [Suspect]
     Active Substance: PALBOCICLIB
     Dosage: 75 MG
     Route: 048
  5. PALBOCICLIB [Suspect]
     Active Substance: PALBOCICLIB
     Dosage: 125 MG
     Route: 048
     Dates: end: 20240105
  6. FEMARA [Concomitant]
     Active Substance: LETROZOLE
     Dosage: 2.5 UNK, 1X/DAY
  7. VIT D [VITAMIN D NOS] [Concomitant]
     Dosage: 60000 UNK, MONTHLY
  8. CCM [Concomitant]
     Dosage: UNK, 2X/DAY

REACTIONS (3)
  - Death [Fatal]
  - Off label use [Unknown]
  - Neoplasm progression [Unknown]

NARRATIVE: CASE EVENT DATE: 20240409
